FAERS Safety Report 6334730-1 (Version None)
Quarter: 2009Q3

REPORT INFORMATION
  Report Type: 
  Country: None (occurrence: None)
  Receive Date: 20090831
  Receipt Date: 20090819
  Transmission Date: 20100115
  Serious: Yes (Hospitalization)
  Sender: FDA-Public Use
  Company Number: ES-PFIZER INC-2009228259

PATIENT
  Age: 77 Year

DRUGS (3)
  1. ALDACTONE [Suspect]
     Indication: HEPATIC CIRRHOSIS
     Dosage: 100 MG, 1X/DAY
     Route: 048
     Dates: start: 20080317, end: 20080426
  2. DIGOXIN [Concomitant]
     Dosage: 0.25 MG, 1X/DAY
     Route: 048
     Dates: start: 20080331
  3. SEGURIL [Concomitant]
     Indication: HEPATIC CIRRHOSIS
     Dosage: 40 MG, DAILY
     Route: 048
     Dates: start: 20080317

REACTIONS (3)
  - CONDITION AGGRAVATED [None]
  - HYPERKALAEMIA [None]
  - VENTRICULAR FIBRILLATION [None]
